FAERS Safety Report 15738877 (Version 1)
Quarter: 2018Q4

REPORT INFORMATION
  Report Type: Report from Study
  Country: US (occurrence: US)
  Receive Date: 20181219
  Receipt Date: 20181219
  Transmission Date: 20190205
  Serious: Yes (Other)
  Sender: FDA-Public Use
  Company Number: US-ROCHE-2227628

PATIENT
  Age: 60 Year
  Sex: Female
  Weight: 68.1 kg

DRUGS (3)
  1. OCREVUS [Suspect]
     Active Substance: OCRELIZUMAB
     Indication: RELAPSING-REMITTING MULTIPLE SCLEROSIS
     Dosage: ONGOING: YES
     Route: 042
     Dates: start: 201806
  2. OCREVUS [Suspect]
     Active Substance: OCRELIZUMAB
     Indication: PRIMARY PROGRESSIVE MULTIPLE SCLEROSIS
     Route: 042
  3. FOSAMAX [Concomitant]
     Active Substance: ALENDRONATE SODIUM
     Dosage: ONGOING: UNKNOWN
     Route: 065

REACTIONS (7)
  - Muscular weakness [Recovered/Resolved]
  - Facial bones fracture [Recovered/Resolved]
  - Hordeolum [Recovered/Resolved]
  - Fall [Unknown]
  - Wrist fracture [Recovering/Resolving]
  - Sinusitis [Unknown]
  - Contusion [Recovering/Resolving]

NARRATIVE: CASE EVENT DATE: 201809
